FAERS Safety Report 5862753-5 (Version None)
Quarter: 2008Q3

REPORT INFORMATION
  Report Type: 
  Country: None (occurrence: None)
  Receive Date: 20080827
  Receipt Date: 20080827
  Transmission Date: 20090109
  Serious: Yes (Other)
  Sender: FDA-Public Use
  Company Number: None

PATIENT
  Age: 16 Year
  Sex: Female
  Weight: 74 kg

DRUGS (4)
  1. SOTRET [Suspect]
     Indication: ACNE CYSTIC
     Dosage: 160 MG DAILY IN 3 DIVIDED PO
     Route: 048
     Dates: start: 20071111
  2. HUMALOG [Concomitant]
  3. LANTUS [Concomitant]
  4. YAZ [Concomitant]

REACTIONS (1)
  - BLISTER [None]
